FAERS Safety Report 8429359-5 (Version None)
Quarter: 2012Q2

REPORT INFORMATION
  Report Type: 
  Country: None (occurrence: None)
  Receive Date: 20120522
  Receipt Date: 20120509
  Transmission Date: 20120825
  Serious: Yes (Death)
  Sender: FDA-Public Use
  Company Number: 2011PROUSA01322

PATIENT
  Age: 68 Year
  Sex: Male
  Weight: 62.1 kg

DRUGS (13)
  1. NEXIUM [Concomitant]
  2. PROVENGE [Suspect]
  3. TRAMADOL HCL [Concomitant]
  4. XAMAX (ALPRAZOLAM BESILATE) [Concomitant]
  5. PROVENGE [Suspect]
     Indication: PROSTATE CANCER METASTATIC
     Dosage: 250 ML, SINGLE, INTRAVENOUS
     Route: 042
     Dates: start: 20110519, end: 20110519
  6. PROVENGE [Suspect]
     Indication: PROSTATE CANCER METASTATIC
     Dosage: 250 ML, SINGLE, INTRAVENOUS
     Route: 042
     Dates: start: 20110606, end: 20110606
  7. PROVENGE [Suspect]
     Indication: PROSTATE CANCER METASTATIC
     Dosage: 250 ML, SINGLE, INTRAVENOUS
     Route: 042
     Dates: start: 20110630, end: 20110630
  8. ZOMETA [Concomitant]
  9. NORVASC [Concomitant]
  10. DETROL [Concomitant]
  11. INSULIN [Concomitant]
  12. PROVENGE [Suspect]
  13. LISINOPRIL [Concomitant]

REACTIONS (3)
  - ANAEMIA [None]
  - GENERAL PHYSICAL CONDITION ABNORMAL [None]
  - FATIGUE [None]
